FAERS Safety Report 22051494 (Version 2)
Quarter: 2023Q1

REPORT INFORMATION
  Report Type: Spontaneous
  Country: JP (occurrence: JP)
  Receive Date: 20230301
  Receipt Date: 20230303
  Transmission Date: 20230418
  Serious: Yes (Hospitalization, Other)
  Sender: FDA-Public Use
  Company Number: JP-BEH-2023155708

PATIENT
  Age: 6 Year
  Sex: Male
  Weight: 16.6 kg

DRUGS (10)
  1. HUMAN IMMUNOGLOBULIN G [Suspect]
     Active Substance: HUMAN IMMUNOGLOBULIN G
     Indication: Primary immunodeficiency syndrome
     Dosage: UNK
     Route: 065
  2. ACYCLOVIR [Concomitant]
     Active Substance: ACYCLOVIR
  3. OXYGEN [Concomitant]
     Active Substance: OXYGEN
  4. FLUDARABINE PHOSPHATE [Concomitant]
     Active Substance: FLUDARABINE PHOSPHATE
     Dosage: UNK
  5. FLUDARABINE PHOSPHATE [Concomitant]
     Active Substance: FLUDARABINE PHOSPHATE
     Dosage: UNK
  6. FLUDARABINE PHOSPHATE [Concomitant]
     Active Substance: FLUDARABINE PHOSPHATE
     Dosage: UNK
  7. FLUDARABINE PHOSPHATE [Concomitant]
     Active Substance: FLUDARABINE PHOSPHATE
     Dosage: UNK
  8. FLUDARABINE PHOSPHATE [Concomitant]
     Active Substance: FLUDARABINE PHOSPHATE
     Dosage: UNK
  9. MELPHALAN [Concomitant]
     Active Substance: MELPHALAN
     Dosage: UNK
  10. MELPHALAN [Concomitant]
     Active Substance: MELPHALAN
     Dosage: UNK

REACTIONS (14)
  - Meningitis aseptic [Unknown]
  - Pyrexia [Unknown]
  - Headache [Unknown]
  - Vomiting [Unknown]
  - Altered state of consciousness [Unknown]
  - Monoparesis [Unknown]
  - CSF cell count increased [Unknown]
  - Nuchal rigidity [Unknown]
  - Asthenia [Unknown]
  - Lymphoproliferative disorder [Unknown]
  - Immunodeficiency common variable [Unknown]
  - Interstitial lung disease [Unknown]
  - Cough [Unknown]
  - X-linked lymphoproliferative syndrome [Unknown]
